FAERS Safety Report 15362413 (Version 1)
Quarter: 2018Q3

REPORT INFORMATION
  Report Type: Spontaneous
  Country: GB (occurrence: GB)
  Receive Date: 20180907
  Receipt Date: 20180907
  Transmission Date: 20181010
  Serious: Yes (Disabling, Other)
  Sender: FDA-Public Use
  Company Number: GB-PFIZER INC-2018357722

PATIENT
  Age: 36 Year
  Sex: Female
  Weight: 53 kg

DRUGS (1)
  1. DEPO?PROVERA [Suspect]
     Active Substance: MEDROXYPROGESTERONE ACETATE
     Indication: CONTRACEPTION
     Dosage: UNK
     Route: 051
     Dates: start: 20161004, end: 20170320

REACTIONS (7)
  - Pain [Recovered/Resolved with Sequelae]
  - Product use issue [Unknown]
  - Joint dislocation [Recovered/Resolved with Sequelae]
  - Condition aggravated [Unknown]
  - Joint instability [Recovered/Resolved with Sequelae]
  - Arthralgia [Unknown]
  - Pain [Unknown]

NARRATIVE: CASE EVENT DATE: 20161025
